FAERS Safety Report 18216244 (Version 1)
Quarter: 2020Q3

REPORT INFORMATION
  Report Type: Spontaneous
  Country: GB (occurrence: GB)
  Receive Date: 20200901
  Receipt Date: 20200901
  Transmission Date: 20201103
  Serious: Yes (Other)
  Sender: FDA-Public Use
  Company Number: GB-009507513-2008GBR012183

PATIENT
  Age: 50 Year
  Sex: Female
  Weight: 87.08 kg

DRUGS (6)
  1. MIRTAZAPINE. [Concomitant]
     Active Substance: MIRTAZAPINE
     Dosage: UNK
  2. FEXOFENADINE HYDROCHLORIDE. [Concomitant]
     Active Substance: FEXOFENADINE HYDROCHLORIDE
     Dosage: UNK
  3. INDAPAMIDE. [Suspect]
     Active Substance: INDAPAMIDE
     Indication: HYPERTENSION
     Dosage: 1.5 MILLIGRAM
     Route: 048
     Dates: start: 20200709, end: 20200721
  4. FELODIPINE. [Concomitant]
     Active Substance: FELODIPINE
     Dosage: UNK
  5. LEVOTHYROXINE SODIUM. [Concomitant]
     Active Substance: LEVOTHYROXINE SODIUM
     Dosage: UNK
  6. LOSARTAN POTASSIUM AND HYDROCHLOROTHIAZIDE [Suspect]
     Active Substance: HYDROCHLOROTHIAZIDE\LOSARTAN POTASSIUM
     Indication: HYPERTENSION
     Dosage: 3/4 TABLET
     Route: 048
     Dates: start: 20180515, end: 20180607

REACTIONS (10)
  - Sensitive skin [Not Recovered/Not Resolved]
  - Anxiety [Not Recovered/Not Resolved]
  - Menopausal symptoms [Unknown]
  - Wheezing [Not Recovered/Not Resolved]
  - Hypokalaemia [Not Recovered/Not Resolved]
  - Panic reaction [Not Recovered/Not Resolved]
  - Blood cholesterol abnormal [Not Recovered/Not Resolved]
  - Blood glucose abnormal [Not Recovered/Not Resolved]
  - Palpitations [Not Recovered/Not Resolved]
  - Adrenal disorder [Not Recovered/Not Resolved]

NARRATIVE: CASE EVENT DATE: 20180515
